FAERS Safety Report 9047096 (Version 1)
Quarter: 2013Q1

REPORT INFORMATION
  Report Type: Spontaneous
  Country: US (occurrence: None)
  Receive Date: 20130130
  Receipt Date: 20130130
  Transmission Date: 20140127
  Serious: No
  Sender: FDA-Public Use
  Company Number: None

PATIENT
  Age: 85 Year
  Sex: Female

DRUGS (7)
  1. REVLIMID 10MG CELGENE [Suspect]
     Indication: PLASMA CELL MYELOMA
     Route: 048
     Dates: start: 201212
  2. DEXAMETHASONE [Concomitant]
  3. LOVASTATIN [Concomitant]
  4. LOSARTAN [Concomitant]
  5. FUROSEMIDE [Concomitant]
  6. ATENOLOL [Concomitant]
  7. FAMOTIDINE [Concomitant]

REACTIONS (3)
  - Mouth ulceration [None]
  - Hypoaesthesia [None]
  - Neuropathy peripheral [None]
